FAERS Safety Report 22541718 (Version 1)
Quarter: 2023Q2

REPORT INFORMATION
  Report Type: Spontaneous
  Country: US (occurrence: US)
  Receive Date: 20230609
  Receipt Date: 20230609
  Transmission Date: 20230722
  Serious: Yes (Hospitalization, Disabling, Other)
  Sender: FDA-Public Use
  Company Number: US-BAYER-2023A077765

PATIENT
  Age: 67 Year
  Sex: Female
  Weight: 75.74 kg

DRUGS (29)
  1. ASPIRIN [Suspect]
     Active Substance: ASPIRIN
  2. TERIFLUNOMIDE [Suspect]
     Active Substance: TERIFLUNOMIDE
     Indication: Multiple sclerosis
  3. TEGRETOL [Concomitant]
     Active Substance: CARBAMAZEPINE
     Indication: Trigeminal neuralgia
  4. GABAPENTIN [Concomitant]
     Active Substance: GABAPENTIN
     Indication: Trigeminal neuralgia
  5. PREDNISONE [Concomitant]
     Active Substance: PREDNISONE
  6. LIPITOR [Concomitant]
     Active Substance: ATORVASTATIN CALCIUM
  7. MULTIVITAMIN [ASCORBIC ACID;CALCIUM PANTOTHENATE;CYANOCOBALAMIN;ER [Concomitant]
  8. ALLEGRA [Concomitant]
     Active Substance: FEXOFENADINE HYDROCHLORIDE
  9. COZAAR [Concomitant]
     Active Substance: LOSARTAN POTASSIUM
  10. CRESTOR [Concomitant]
     Active Substance: ROSUVASTATIN CALCIUM
  11. TOPROL XL [Concomitant]
     Active Substance: METOPROLOL SUCCINATE
  12. VALACYCLOVIR HYDROCHLORIDE [Concomitant]
     Active Substance: VALACYCLOVIR HYDROCHLORIDE
  13. SPIRONOLACTONE [Concomitant]
     Active Substance: SPIRONOLACTONE
  14. ASACOL [Concomitant]
     Active Substance: MESALAMINE
  15. HYDRALAZINE HCL [Concomitant]
     Active Substance: HYDRALAZINE HYDROCHLORIDE
  16. CLOPIDOGREL BISULFATE [Concomitant]
     Active Substance: CLOPIDOGREL BISULFATE
  17. ZETIA [Concomitant]
     Active Substance: EZETIMIBE
  18. CALCIUM\CHOLECALCIFEROL [Concomitant]
     Active Substance: CALCIUM\CHOLECALCIFEROL
  19. LIDOCAINE [Concomitant]
     Active Substance: LIDOCAINE
  20. AZELASTINE HYDROCHLORIDE [Concomitant]
     Active Substance: AZELASTINE HYDROCHLORIDE
  21. CEFIXIME [Concomitant]
     Active Substance: CEFIXIME
  22. FLUTICASONE PROPIONATE [Concomitant]
     Active Substance: FLUTICASONE PROPIONATE
  23. ALENDRONATE SODIUM [Concomitant]
     Active Substance: ALENDRONATE SODIUM
  24. METOPROLOL [Concomitant]
     Active Substance: METOPROLOL
  25. CALCIUM CITRATE [Concomitant]
     Active Substance: CALCIUM CITRATE
  26. LOSARTAN [Concomitant]
     Active Substance: LOSARTAN
  27. TRAMADOL HCL [Concomitant]
     Active Substance: TRAMADOL HYDROCHLORIDE
     Indication: Trigeminal neuralgia
  28. GLUCOSAMINE CHONDROITIN [CHONDROITIN SULFATE;GLUCOSAMINE] [Concomitant]
  29. ACYCLOVIR [Concomitant]
     Active Substance: ACYCLOVIR

REACTIONS (41)
  - Brain death [None]
  - Fall [None]
  - Hand fracture [None]
  - Tongue paralysis [None]
  - Impaired driving ability [None]
  - Trigeminal neuralgia [None]
  - Cardiac operation [None]
  - Loss of personal independence in daily activities [None]
  - Plague [None]
  - Clostridium difficile infection [None]
  - Vomiting [None]
  - Diarrhoea [None]
  - Nausea [None]
  - Sleep disorder [None]
  - Confusional state [None]
  - Eating disorder [None]
  - Pain in jaw [None]
  - Trismus [None]
  - Tooth disorder [None]
  - Cardiac disorder [None]
  - Muscle spasms [None]
  - Decreased appetite [None]
  - Blood cholesterol increased [None]
  - Cough [None]
  - Illness [None]
  - Poor quality sleep [None]
  - Anxiety [None]
  - Speech disorder [None]
  - Dysgraphia [None]
  - Gait disturbance [None]
  - Balance disorder [None]
  - Cyst [None]
  - Arthritis [None]
  - Excessive cerumen production [None]
  - Ear discomfort [None]
  - Procedural pain [None]
  - Viral infection [None]
  - Weight decreased [None]
  - Hypertension [None]
  - Arthralgia [None]
  - Musculoskeletal disorder [None]
